FAERS Safety Report 13045545 (Version 1)
Quarter: 2016Q4

REPORT INFORMATION
  Report Type: Spontaneous
  Country: MX (occurrence: MX)
  Receive Date: 20161220
  Receipt Date: 20161220
  Transmission Date: 20170207
  Serious: Yes (Other)
  Sender: FDA-Public Use
  Company Number: MX-BAYER-2016-042836

PATIENT
  Age: 62 Year
  Sex: Male

DRUGS (11)
  1. OMEPRAZOLE. [Concomitant]
     Active Substance: OMEPRAZOLE
  2. METOCLOPRAMIDE. [Concomitant]
     Active Substance: METOCLOPRAMIDE
  3. FOLIC ACID. [Concomitant]
     Active Substance: FOLIC ACID
  4. CELEBREX [Concomitant]
     Active Substance: CELECOXIB
  5. LOPERAMIDE [Concomitant]
     Active Substance: LOPERAMIDE
     Dosage: UNK
  6. ACETAMINOPHEN. [Concomitant]
     Active Substance: ACETAMINOPHEN
  7. BUPRENORPHINE. [Concomitant]
     Active Substance: BUPRENORPHINE
  8. FERROUS FUMARATE [Concomitant]
     Active Substance: FERROUS FUMARATE
  9. TRIBEDOCE [Concomitant]
  10. METOPROLOL. [Concomitant]
     Active Substance: METOPROLOL
  11. NEXAVAR [Suspect]
     Active Substance: SORAFENIB
     Indication: RENAL CANCER
     Dosage: 800 MG, QD
     Route: 048
     Dates: start: 20160208

REACTIONS (17)
  - Decreased appetite [Not Recovered/Not Resolved]
  - Abdominal pain [Not Recovered/Not Resolved]
  - Blood uric acid increased [Not Recovered/Not Resolved]
  - Urinary tract infection [Unknown]
  - Chills [Not Recovered/Not Resolved]
  - Pain [Not Recovered/Not Resolved]
  - Burning sensation [Not Recovered/Not Resolved]
  - Diarrhoea [Not Recovered/Not Resolved]
  - Constipation [Not Recovered/Not Resolved]
  - Stomatitis [Not Recovered/Not Resolved]
  - Ear congestion [Not Recovered/Not Resolved]
  - Pyrexia [Not Recovered/Not Resolved]
  - Muscle spasms [Not Recovered/Not Resolved]
  - Skin exfoliation [Not Recovered/Not Resolved]
  - Vomiting [Not Recovered/Not Resolved]
  - Dysphonia [Not Recovered/Not Resolved]
  - Oral disorder [Not Recovered/Not Resolved]

NARRATIVE: CASE EVENT DATE: 2016
